FAERS Safety Report 10046813 (Version 2)
Quarter: 2014Q1

REPORT INFORMATION
  Report Type: Spontaneous
  Country: CA (occurrence: CA)
  Receive Date: 20140331
  Receipt Date: 20140331
  Transmission Date: 20141002
  Serious: Yes (Other)
  Sender: FDA-Public Use
  Company Number: PHHY2014CA031422

PATIENT
  Age: 79 Year
  Sex: Male

DRUGS (8)
  1. EXELON PATCH [Suspect]
     Dosage: 4.6 MG, QD
     Route: 062
     Dates: start: 20140207, end: 20140307
  2. EXELON PATCH [Suspect]
     Dosage: 9.5 MG, QD
     Route: 062
     Dates: start: 20140307, end: 20140321
  3. CRESTOR [Concomitant]
     Dosage: 5 MG,DAILY
  4. BISOPROLOL [Concomitant]
     Dosage: 0.5 DF, DAILY
  5. SYNTHYROID [Concomitant]
     Dosage: 0.05 MG, DAILY
  6. VASERETIC [Concomitant]
     Dosage: 10MG/25MG DAILY
  7. COUMADIN//WARFARIN SODIUM [Concomitant]
     Dosage: UNK UKN, UNK
  8. NORVASC [Concomitant]
     Dosage: 5 MG, DAILY

REACTIONS (6)
  - Disorientation [Recovered/Resolved]
  - Sleep disorder [Recovered/Resolved]
  - Hallucination, auditory [Recovered/Resolved]
  - Somnolence [Recovered/Resolved]
  - Middle insomnia [Recovered/Resolved]
  - Diarrhoea [Recovered/Resolved]
